FAERS Safety Report 22102015 (Version 1)
Quarter: 2023Q1

REPORT INFORMATION
  Report Type: Spontaneous
  Country: US (occurrence: None)
  Receive Date: 20230315
  Receipt Date: 20230315
  Transmission Date: 20230418
  Serious: Yes (Hospitalization)
  Sender: FDA-Public Use
  Company Number: None

PATIENT
  Sex: Female

DRUGS (1)
  1. BOTOX [Suspect]
     Active Substance: ONABOTULINUMTOXINA
     Indication: Migraine without aura
     Dosage: 200 UNIT INJECTION?PRESCRIBER TO INJECT UP TO 200 UNITS INTO FACIAL AND CERVICAL MUSCLES EVERY 12 WE
     Dates: start: 20200807

REACTIONS (2)
  - Heart rate decreased [None]
  - Arrhythmia [None]
